FAERS Safety Report 7034373-0 (Version None)
Quarter: 2010Q4

REPORT INFORMATION
  Report Type: 
  Country: None (occurrence: None)
  Receive Date: 20101008
  Receipt Date: 20101001
  Transmission Date: 20110411
  Serious: Yes (Other)
  Sender: FDA-Public Use
  Company Number: US-JNJFOC-20101001142

PATIENT
  Sex: Female
  Weight: 47.17 kg

DRUGS (2)
  1. SANDOZ FENTANYL TRANSDRMAL SYSTEM [Suspect]
     Indication: PELVIC FRACTURE
     Route: 062
  2. LOVASTATIN [Concomitant]
     Indication: BLOOD CHOLESTEROL
     Route: 048

REACTIONS (9)
  - ABNORMAL LOSS OF WEIGHT [None]
  - ASTHENIA [None]
  - DRUG DOSE OMISSION [None]
  - ERYTHEMA [None]
  - FEELING ABNORMAL [None]
  - INSOMNIA [None]
  - THERAPY CESSATION [None]
  - TREMOR [None]
  - WITHDRAWAL SYNDROME [None]
